FAERS Safety Report 21422800 (Version 1)
Quarter: 2022Q4

REPORT INFORMATION
  Report Type: Spontaneous
  Country: JP (occurrence: JP)
  Receive Date: 20221007
  Receipt Date: 20221007
  Transmission Date: 20230113
  Serious: Yes (Hospitalization)
  Sender: FDA-Public Use
  Company Number: JP-ARBOR PHARMACEUTICALS, LLC-JP-2022ARB002238

PATIENT
  Age: 74 Year
  Sex: Male

DRUGS (1)
  1. GLIADEL [Suspect]
     Active Substance: CARMUSTINE
     Indication: Glioblastoma
     Dosage: UNKNOWN TOTAL DOSE (7.7 MG)
     Route: 018

REACTIONS (1)
  - Brain herniation [Recovering/Resolving]
